FAERS Safety Report 11693177 (Version 1)
Quarter: 2015Q4

REPORT INFORMATION
  Report Type: Spontaneous
  Country: US (occurrence: None)
  Receive Date: 20151102
  Receipt Date: 20151102
  Transmission Date: 20160304
  Serious: No
  Sender: FDA-Public Use
  Company Number: None

PATIENT
  Age: 81 Year
  Sex: Female
  Weight: 85.73 kg

DRUGS (4)
  1. LIPITOR [Concomitant]
     Active Substance: ATORVASTATIN CALCIUM
  2. BRIMONIDINE [Suspect]
     Active Substance: BRIMONIDINE TARTRATE
     Indication: OPTIC DISC DRUSEN
     Dosage: 1 DROP
     Route: 047
     Dates: start: 20151020, end: 20151025
  3. BRIMONIDINE [Suspect]
     Active Substance: BRIMONIDINE TARTRATE
     Indication: PROPHYLAXIS
     Dosage: 1 DROP
     Route: 047
     Dates: start: 20151020, end: 20151025
  4. VITAMIN C [Concomitant]
     Active Substance: ASCORBIC ACID

REACTIONS (5)
  - Ocular hyperaemia [None]
  - Headache [None]
  - Eye irritation [None]
  - Foreign body sensation in eyes [None]
  - Dry eye [None]

NARRATIVE: CASE EVENT DATE: 20151020
